FAERS Safety Report 8911458 (Version 2)
Quarter: 2013Q1

REPORT INFORMATION
  Report Type: Spontaneous
  Country: US (occurrence: US)
  Receive Date: 20121116
  Receipt Date: 20130225
  Transmission Date: 20140127
  Serious: Yes (Hospitalization)
  Sender: FDA-Public Use
  Company Number: US-009507513-1211USA004373

PATIENT
  Age: 12 Year
  Sex: Female

DRUGS (9)
  1. NOXAFIL [Suspect]
     Indication: FUNGAL INFECTION
     Dosage: UNK
     Route: 048
     Dates: start: 20121025, end: 20121105
  2. ALUMINUM HYDROXIDE [Concomitant]
  3. AMBISOME [Concomitant]
  4. AMLODIPINE [Concomitant]
  5. CITALOPRAM [Concomitant]
  6. KEPPRA [Concomitant]
  7. ZOFRAN [Concomitant]
  8. SEVELAMER [Concomitant]
  9. PYRIDOXINE [Concomitant]

REACTIONS (2)
  - Jaundice [Not Recovered/Not Resolved]
  - Hyperbilirubinaemia [Not Recovered/Not Resolved]
